FAERS Safety Report 25706148 (Version 1)
Quarter: 2025Q3

REPORT INFORMATION
  Report Type: Spontaneous
  Country: EU (occurrence: EU)
  Receive Date: 20250820
  Receipt Date: 20250820
  Transmission Date: 20251021
  Serious: Yes (Hospitalization, Other)
  Sender: TEVA
  Company Number: None

PATIENT
  Age: 89 Year
  Sex: Female
  Weight: 57 kg

DRUGS (4)
  1. COTRIM [Interacting]
     Active Substance: SULFAMETHOXAZOLE\TRIMETHOPRIM
     Indication: Internal fixation of fracture
     Dosage: COTRIM-RATIOPHARM 400 MG/80 MG
     Route: 048
     Dates: start: 20250625, end: 20250729
  2. SPIRONOLACTONE [Interacting]
     Active Substance: SPIRONOLACTONE
     Indication: Hypertension
     Dosage: 0.5-0-0-0, CURRENTLY PAUSED: SPIRONOLACTONE RATIOPHARM
     Route: 048
  3. RIFAMPIN [Concomitant]
     Active Substance: RIFAMPIN
     Indication: Staphylococcal infection
     Route: 065
  4. RAMIPRIL [Interacting]
     Active Substance: RAMIPRIL
     Indication: Hypertension
     Dosage: 1-0-0-0, CURRENTLY PRESCRIBED: RAMIPRIL HEXAL
     Route: 048

REACTIONS (8)
  - Status epilepticus [Recovered/Resolved with Sequelae]
  - Hyponatraemia [Recovered/Resolved with Sequelae]
  - Labelled drug-drug interaction issue [Unknown]
  - Drug monitoring procedure not performed [Unknown]
  - Hyperkalaemia [Recovered/Resolved with Sequelae]
  - Dehydration [Recovered/Resolved with Sequelae]
  - Product prescribing issue [Unknown]
  - Product selection error [Unknown]

NARRATIVE: CASE EVENT DATE: 20250729
